FAERS Safety Report 7226000-4 (Version None)
Quarter: 2011Q1

REPORT INFORMATION
  Report Type: 
  Country: None (occurrence: None)
  Receive Date: 20110113
  Receipt Date: 20110110
  Transmission Date: 20110831
  Serious: Yes (Other)
  Sender: FDA-Public Use
  Company Number: US-PFIZER INC-2011006044

PATIENT
  Sex: Female

DRUGS (6)
  1. MELOXICAM [Concomitant]
     Dosage: 50 MG, UNK
  2. PRISTIQ [Suspect]
     Indication: DEPRESSION
  3. PRISTIQ [Suspect]
     Indication: BIPOLAR DISORDER
     Dosage: 50 MG, UNK
  4. EFFEXOR XR [Suspect]
     Indication: DEPRESSION
     Dosage: UNK, 1X/DAY
     Dates: start: 20100601
  5. EFFEXOR XR [Suspect]
     Indication: BIPOLAR DISORDER
  6. SYMBICORT [Concomitant]
     Indication: ASTHMA
     Dosage: UNK

REACTIONS (4)
  - HALLUCINATION [None]
  - IMPAIRED DRIVING ABILITY [None]
  - SUICIDAL IDEATION [None]
  - DELUSION [None]
